FAERS Safety Report 7259274-4 (Version None)
Quarter: 2011Q1

REPORT INFORMATION
  Report Type: 
  Country: None (occurrence: None)
  Receive Date: 20110129
  Receipt Date: 20100723
  Transmission Date: 20110831
  Serious: Yes (Hospitalization)
  Sender: FDA-Public Use
  Company Number: US-ABBOTT-10P-163-0660974-00

PATIENT

DRUGS (2)
  1. HUMIRA [Suspect]
     Dates: start: 20100617
  2. HUMIRA [Suspect]
     Indication: CROHN'S DISEASE
     Route: 058
     Dates: start: 20100523

REACTIONS (1)
  - KIDNEY INFECTION [None]
